FAERS Safety Report 24400214 (Version 3)
Quarter: 2024Q4

REPORT INFORMATION
  Report Type: Spontaneous
  Country: US (occurrence: US)
  Receive Date: 20241005
  Receipt Date: 20241030
  Transmission Date: 20250114
  Serious: No
  Sender: ROCHE
  Company Number: US-ROCHE-10000093610

PATIENT
  Sex: Female
  Weight: 58.97 kg

DRUGS (3)
  1. XOLAIR [Suspect]
     Active Substance: OMALIZUMAB
     Indication: Urticaria
     Route: 058
     Dates: start: 202402
  2. ALLEGRA [Concomitant]
     Active Substance: FEXOFENADINE HYDROCHLORIDE
     Indication: Urticaria
     Dosage: WHEN WALKING IN THE SUN ON A REGULAR DAY
     Route: 048
     Dates: start: 202206
  3. ALLEGRA [Concomitant]
     Active Substance: FEXOFENADINE HYDROCHLORIDE
     Dosage: TWO 180 MG TABLETS PER DOSE (ONCE IN THE MORNING AND EVENING) WHENGOING ON THE BEACH
     Route: 048
     Dates: start: 202206

REACTIONS (4)
  - Device defective [Unknown]
  - Needle issue [Unknown]
  - Product dose omission issue [Unknown]
  - No adverse event [Unknown]
